FAERS Safety Report 13033969 (Version 1)
Quarter: 2016Q4

REPORT INFORMATION
  Report Type: Spontaneous
  Country: DE (occurrence: DE)
  Receive Date: 20161216
  Receipt Date: 20161216
  Transmission Date: 20170207
  Serious: Yes (Other)
  Sender: FDA-Public Use
  Company Number: DE-DRREDDYS-GER/GER/16/0085400

PATIENT
  Age: 64 Year
  Sex: Male
  Weight: 118 kg

DRUGS (13)
  1. L-THYROXIN 75 HENNING [Suspect]
     Active Substance: LEVOTHYROXINE SODIUM
     Indication: PRODUCT USED FOR UNKNOWN INDICATION
     Dates: start: 2009
  2. RAMIPRIL BETA 5 MG [Suspect]
     Active Substance: RAMIPRIL
     Indication: PRODUCT USED FOR UNKNOWN INDICATION
     Route: 048
     Dates: start: 2010, end: 20161120
  3. PANTOPRAZOL NYC 40MG [Suspect]
     Active Substance: PANTOPRAZOLE SODIUM
     Indication: PRODUCT USED FOR UNKNOWN INDICATION
     Dates: start: 2009
  4. OPIPRAMOL-NEURAXPHARM 100 MG [Suspect]
     Active Substance: OPIPRAMOL HYDROCHLORIDE
     Indication: PRODUCT USED FOR UNKNOWN INDICATION
  5. METOPROLOL 47.6MG [Suspect]
     Active Substance: METOPROLOL
     Indication: PRODUCT USED FOR UNKNOWN INDICATION
     Dates: start: 2009, end: 201611
  6. BAYOTENSIN AKUT 5MG/1ML [Concomitant]
     Indication: HYPERTENSION
     Dosage: 2-3 X A YEAR FOR VERY HIGH BLOOD PRESSURE
     Dates: start: 2014
  7. ASS 100 [Concomitant]
     Active Substance: ASPIRIN
     Indication: PRODUCT USED FOR UNKNOWN INDICATION
  8. AMLODIPIN 5MG [Suspect]
     Active Substance: AMLODIPINE BESYLATE
     Indication: PRODUCT USED FOR UNKNOWN INDICATION
     Dates: start: 201305, end: 20161120
  9. NEPRESOL 25MG (DIHYDRALAZINE SULFATE) [Suspect]
     Active Substance: DIHYDRALAZINE SULFATE
     Indication: PRODUCT USED FOR UNKNOWN INDICATION
     Dates: start: 2009
  10. ATORVASTATIN STADA 10MG [Suspect]
     Active Substance: ATORVASTATIN
     Indication: PRODUCT USED FOR UNKNOWN INDICATION
  11. HYDROCHLOROTHIAZIDE. [Suspect]
     Active Substance: HYDROCHLOROTHIAZIDE
     Indication: PRODUCT USED FOR UNKNOWN INDICATION
     Dates: end: 20161120
  12. MAGNESIUM 400MG [Concomitant]
     Indication: PRODUCT USED FOR UNKNOWN INDICATION
  13. TAMSULOSIN BASICS 0.4MG [Suspect]
     Active Substance: TAMSULOSIN
     Indication: PRODUCT USED FOR UNKNOWN INDICATION
     Dates: start: 201210

REACTIONS (40)
  - Myalgia [Unknown]
  - Nervousness [Unknown]
  - Muscular weakness [Unknown]
  - Dizziness [Unknown]
  - Sexual dysfunction [Unknown]
  - Headache [Unknown]
  - Oedema [Unknown]
  - Nasal congestion [Unknown]
  - Back pain [Unknown]
  - Abdominal pain [Unknown]
  - Erectile dysfunction [Unknown]
  - Muscle spasms [Unknown]
  - Depressed mood [Unknown]
  - Photophobia [Unknown]
  - Depression [Unknown]
  - Diarrhoea [Unknown]
  - Sleep disorder [Unknown]
  - Arthralgia [Unknown]
  - Dry eye [Unknown]
  - Vision blurred [Unknown]
  - Fatigue [Unknown]
  - Pruritus [Unknown]
  - Oedema peripheral [Unknown]
  - Visual impairment [Unknown]
  - Asthenia [Unknown]
  - Chest pain [Unknown]
  - Gingival bleeding [Unknown]
  - Dry mouth [Unknown]
  - Weight increased [Unknown]
  - Conjunctivitis [Unknown]
  - Magnesium deficiency [Unknown]
  - Lacrimal disorder [Unknown]
  - Hypoaesthesia [Unknown]
  - Abdominal pain upper [Unknown]
  - Anxiety [Unknown]
  - Memory impairment [Unknown]
  - Dyspnoea [Unknown]
  - Micturition urgency [Unknown]
  - Balance disorder [Unknown]
  - Nasal dryness [Unknown]

NARRATIVE: CASE EVENT DATE: 2009
